FAERS Safety Report 20048805 (Version 2)
Quarter: 2022Q4

REPORT INFORMATION
  Report Type: Report from Study
  Country: NL (occurrence: NL)
  Receive Date: 20211109
  Receipt Date: 20221013
  Transmission Date: 20230112
  Serious: Yes (Other)
  Sender: FDA-Public Use
  Company Number: NL-BAYER-2021A214184

PATIENT
  Age: 78 Year
  Sex: Female

DRUGS (2)
  1. ADEMPAS [Suspect]
     Active Substance: RIOCIGUAT
     Indication: Pulmonary arterial hypertension
     Dosage: UNK
  2. ADEMPAS [Suspect]
     Active Substance: RIOCIGUAT
     Indication: Pulmonary arterial hypertension
     Dosage: 2 MG, TID
     Dates: start: 20201126, end: 202109

REACTIONS (3)
  - Syncope [Not Recovered/Not Resolved]
  - Hypotension [None]
  - Fall [None]

NARRATIVE: CASE EVENT DATE: 20210915
